FAERS Safety Report 13585669 (Version 1)
Quarter: 2017Q2

REPORT INFORMATION
  Report Type: Spontaneous
  Country: US (occurrence: US)
  Receive Date: 20170526
  Receipt Date: 20170526
  Transmission Date: 20170830
  Serious: No
  Sender: FDA-Public Use
  Company Number: US-BAUSCH-BL-2016-010247

PATIENT
  Sex: Female

DRUGS (2)
  1. CUPRIMINE [Suspect]
     Active Substance: PENICILLAMINE
     Indication: RHEUMATOID ARTHRITIS
     Route: 048
     Dates: start: 2016
  2. CUPRIMINE [Suspect]
     Active Substance: PENICILLAMINE
     Route: 048
     Dates: start: 2016

REACTIONS (2)
  - Stomatitis [Unknown]
  - Eye ulcer [Unknown]

NARRATIVE: CASE EVENT DATE: 2016
